FAERS Safety Report 7416436-0 (Version None)
Quarter: 2011Q2

REPORT INFORMATION
  Report Type: 
  Country: None (occurrence: None)
  Receive Date: 20110414
  Receipt Date: 20110407
  Transmission Date: 20111010
  Serious: Yes (Other)
  Sender: FDA-Public Use
  Company Number: US-AMGEN-KDL443050

PATIENT
  Age: 15 Year
  Sex: Female

DRUGS (4)
  1. DANAZOL [Concomitant]
     Dosage: UNK UNK, UNK
     Dates: start: 20100708
  2. CORTICOSTEROID NOS [Concomitant]
     Dosage: UNK UNK, UNK
     Dates: start: 20100518
  3. NPLATE [Suspect]
     Indication: IDIOPATHIC THROMBOCYTOPENIC PURPURA
     Dosage: 6 A?G/KG, UNK
     Dates: start: 20100611, end: 20100722
  4. NPLATE [Suspect]
     Dosage: 490 A?G, UNK
     Dates: end: 20100722

REACTIONS (3)
  - HEADACHE [None]
  - SPLENECTOMY [None]
  - DRUG INEFFECTIVE [None]
